FAERS Safety Report 8757458 (Version 2)
Quarter: 2012Q4

REPORT INFORMATION
  Report Type: 
  Country: BR (occurrence: BR)
  Receive Date: 20120828
  Receipt Date: 20120828
  Transmission Date: 20130627
  Serious: Yes (Other)
  Sender: FDA-Public Use
  Company Number: PHHY2011BR16537

PATIENT
  Sex: Male
  Weight: 68 kg

DRUGS (3)
  1. DIOVAN HCT [Suspect]
     Indication: HYPERTENSION
     Dosage: 1 DF, (320/12.5 mg) daily
     Route: 048
  2. DIOVAN HCT [Suspect]
     Dosage: 1 DF, (160/12.5 mg) at morning
     Route: 048
  3. CALTREN [Suspect]
     Indication: HYPERTENSION
     Dosage: 0.5 DF, daily

REACTIONS (7)
  - Pneumonia [Recovered/Resolved]
  - Parkinson^s disease [Unknown]
  - Infarction [Recovered/Resolved]
  - Blood pressure increased [Recovering/Resolving]
  - Anxiety [Unknown]
  - Depression [Unknown]
  - Drug effect incomplete [Recovering/Resolving]
